FAERS Safety Report 6252743-5 (Version None)
Quarter: 2009Q3

REPORT INFORMATION
  Report Type: 
  Country: None (occurrence: None)
  Receive Date: 20090701
  Receipt Date: 20090619
  Transmission Date: 20100115
  Serious: Yes (Other)
  Sender: FDA-Public Use
  Company Number: PHHO2009ES07842

PATIENT
  Sex: Female

DRUGS (14)
  1. CYCLOSPORINE [Suspect]
     Indication: RENAL TRANSPLANT
     Dosage: UNK
     Route: 048
     Dates: start: 20040211, end: 20040524
  2. MYCOPHENOLATE MOFETIL [Suspect]
  3. TACROLIMUS [Suspect]
  4. STEROIDS NOS [Suspect]
  5. AMLODIPINE BESYLATE [Concomitant]
  6. LOSARTAN POTASSIUM [Concomitant]
  7. VALGANCICLOVIR HCL [Concomitant]
  8. FOLIC ACID [Concomitant]
  9. FUROSEMIDE INTENSOL [Concomitant]
  10. RANITIDINE [Concomitant]
  11. SULFAMETHOXAZOLE AND TRIMETHOPRIM [Concomitant]
  12. CEFOTAXIME SODIUM [Concomitant]
  13. TIMOGLOBULINA [Concomitant]
  14. NEUPOGEN [Concomitant]

REACTIONS (1)
  - HYPERTRICHOSIS [None]
